FAERS Safety Report 9169890 (Version 1)
Quarter: 2013Q1

REPORT INFORMATION
  Report Type: Spontaneous
  Country: US (occurrence: None)
  Receive Date: 20130314
  Receipt Date: 20130314
  Transmission Date: 20140127
  Serious: Yes (Life-Threatening, Hospitalization)
  Sender: FDA-Public Use
  Company Number: None

PATIENT
  Age: 14 Year
  Sex: Female
  Weight: 48.99 kg

DRUGS (1)
  1. AZITHROMYCIN, UNSPECIFIED FORM [Suspect]
     Indication: BRONCHITIS
     Route: 048

REACTIONS (4)
  - Dizziness [None]
  - Palpitations [None]
  - Electrocardiogram abnormal [None]
  - Atrial fibrillation [None]
